FAERS Safety Report 16277950 (Version 2)
Quarter: 2020Q2

REPORT INFORMATION
  Report Type: Spontaneous
  Country: US (occurrence: US)
  Receive Date: 20190506
  Receipt Date: 20200408
  Transmission Date: 20200713
  Serious: Yes (Other)
  Sender: FDA-Public Use
  Company Number: US-GILEAD-2019-0405257

PATIENT
  Age: 59 Year
  Sex: Male

DRUGS (1)
  1. STRIBILD [Suspect]
     Active Substance: COBICISTAT\ELVITEGRAVIR\EMTRICITABINE\TENOFOVIR DISOPROXIL FUMARATE
     Indication: HIV INFECTION
     Dosage: UNK
     Route: 048
     Dates: start: 20121010, end: 20150329

REACTIONS (11)
  - Economic problem [Unknown]
  - Osteoporosis [Unknown]
  - Chronic kidney disease [Unknown]
  - Osteopenia [Unknown]
  - Bone density decreased [Unknown]
  - Emotional distress [Unknown]
  - Bone loss [Unknown]
  - Anxiety [Unknown]
  - Osteonecrosis [Unknown]
  - Anhedonia [Unknown]
  - Pain [Unknown]

NARRATIVE: CASE EVENT DATE: 2018
